FAERS Safety Report 24869232 (Version 1)
Quarter: 2025Q1

REPORT INFORMATION
  Report Type: Spontaneous
  Country: US (occurrence: None)
  Receive Date: 20250116
  Receipt Date: 20250116
  Transmission Date: 20250408
  Serious: Yes (unspecified)
  Sender: FDA-CTU
  Company Number: None

PATIENT
  Age: 70 Year
  Sex: Female

DRUGS (1)
  1. ORENCIA [Suspect]
     Active Substance: ABATACEPT
     Indication: Rheumatoid arthritis
     Dosage: FREQUENCY : MONTHLY;?
     Route: 041
     Dates: start: 20210823, end: 20250114

REACTIONS (2)
  - Anaphylactic reaction [None]
  - Infusion related reaction [None]

NARRATIVE: CASE EVENT DATE: 20250116
